FAERS Safety Report 24583177 (Version 1)
Quarter: 2024Q4

REPORT INFORMATION
  Report Type: Spontaneous
  Country: US (occurrence: US)
  Receive Date: 20241106
  Receipt Date: 20241106
  Transmission Date: 20250115
  Serious: No
  Sender: AUROBINDO
  Company Number: US-AUROBINDO-AUR-APL-2024-016646

PATIENT

DRUGS (2)
  1. ESCITALOPRAM OXALATE [Suspect]
     Active Substance: ESCITALOPRAM OXALATE
     Indication: Anxiety
     Dosage: UNK
     Route: 065
  2. ESCITALOPRAM [Concomitant]
     Active Substance: ESCITALOPRAM OXALATE
     Indication: Anxiety
     Dosage: 10 MILLIGRAM (ESCITALOPRAM 10MG FROM SOLCO TO AUROBINDO)
     Route: 065

REACTIONS (6)
  - Tremor [Unknown]
  - Anxiety [Unknown]
  - Dissociation [Unknown]
  - Dizziness [Unknown]
  - Nausea [Unknown]
  - Product substitution issue [Unknown]
